FAERS Safety Report 24899514 (Version 2)
Quarter: 2025Q3

REPORT INFORMATION
  Report Type: Report from Study
  Country: US (occurrence: US)
  Receive Date: 20250129
  Receipt Date: 20250809
  Transmission Date: 20251021
  Serious: Yes (Other)
  Sender: ALEXION PHARMACEUTICALS
  Company Number: US-AstraZeneca-CH-00791243A

PATIENT
  Sex: Female

DRUGS (1)
  1. OLAPARIB [Suspect]
     Active Substance: OLAPARIB
     Route: 065

REACTIONS (7)
  - Bladder cancer [Unknown]
  - Fatigue [Unknown]
  - Somnolence [Unknown]
  - Cystitis [Unknown]
  - Product dose omission issue [Unknown]
  - Product use complaint [Unknown]
  - Wrong technique in product usage process [Unknown]
